FAERS Safety Report 12533645 (Version 1)
Quarter: 2016Q3

REPORT INFORMATION
  Report Type: Spontaneous
  Country: US (occurrence: US)
  Receive Date: 20160706
  Receipt Date: 20160706
  Transmission Date: 20161109
  Serious: No
  Sender: FDA-Public Use
  Company Number: US-PURDUE-USA-2016-0128724

PATIENT
  Age: 58 Year
  Sex: Male

DRUGS (3)
  1. BUTRANS [Suspect]
     Active Substance: BUPRENORPHINE
     Dosage: 7.5 MCG/HR, WEEKLY
     Route: 062
     Dates: start: 20160104, end: 20160114
  2. BUTRANS [Suspect]
     Active Substance: BUPRENORPHINE
     Dosage: 10 MCG/HR, WEEKLY
     Route: 062
     Dates: start: 20160115, end: 20160130
  3. BUTRANS [Suspect]
     Active Substance: BUPRENORPHINE
     Indication: PAIN
     Dosage: 5 MCG/HR, WEEKLY
     Route: 062
     Dates: start: 20160104

REACTIONS (9)
  - Libido decreased [Unknown]
  - Nausea [Recovered/Resolved]
  - Drug ineffective [Recovered/Resolved]
  - Dizziness [Recovered/Resolved]
  - Drug effect increased [Recovered/Resolved]
  - Erectile dysfunction [Unknown]
  - Dysstasia [Recovered/Resolved]
  - Hyperhidrosis [Recovered/Resolved]
  - Neck pain [Not Recovered/Not Resolved]

NARRATIVE: CASE EVENT DATE: 20160104
